FAERS Safety Report 12632177 (Version 2)
Quarter: 2016Q3

REPORT INFORMATION
  Report Type: Spontaneous
  Country: US (occurrence: US)
  Receive Date: 20160808
  Receipt Date: 20160808
  Transmission Date: 20161109
  Serious: No
  Sender: FDA-Public Use
  Company Number: US-BEH-2016062079

PATIENT
  Sex: Female
  Weight: 99 kg

DRUGS (24)
  1. NIFEDIPINE. [Concomitant]
     Active Substance: NIFEDIPINE
  2. LEVAQUIN [Concomitant]
     Active Substance: LEVOFLOXACIN
  3. VERAPAMIL [Concomitant]
     Active Substance: VERAPAMIL HYDROCHLORIDE
  4. CYMBALTA [Concomitant]
     Active Substance: DULOXETINE HYDROCHLORIDE
  5. HIZENTRA [Suspect]
     Active Substance: HUMAN IMMUNOGLOBULIN G
     Indication: IMMUNODEFICIENCY COMMON VARIABLE
  6. PANTOPRAZOLE [Concomitant]
     Active Substance: PANTOPRAZOLE SODIUM
  7. TRAMADOL. [Concomitant]
     Active Substance: TRAMADOL
  8. AZATHIOPRINE. [Concomitant]
     Active Substance: AZATHIOPRINE
  9. HIZENTRA [Suspect]
     Active Substance: HUMAN IMMUNOGLOBULIN G
     Route: 058
     Dates: start: 20150108
  10. ACETAMINOPHEN. [Concomitant]
     Active Substance: ACETAMINOPHEN
  11. EPIPEN [Concomitant]
     Active Substance: EPINEPHRINE
  12. DIPHENHYDRAMINE. [Concomitant]
     Active Substance: DIPHENHYDRAMINE
  13. PROAIR HFA [Concomitant]
     Active Substance: ALBUTEROL SULFATE
  14. OXYGEN. [Concomitant]
     Active Substance: OXYGEN
  15. PIROXICAM. [Concomitant]
     Active Substance: PIROXICAM
  16. ALPRAZOLAM. [Concomitant]
     Active Substance: ALPRAZOLAM
  17. TRAZODONE [Concomitant]
     Active Substance: TRAZODONE HYDROCHLORIDE
  18. RANITIDINE. [Concomitant]
     Active Substance: RANITIDINE
  19. PLAQUENIL [Concomitant]
     Active Substance: HYDROXYCHLOROQUINE SULFATE
  20. HIZENTRA [Suspect]
     Active Substance: HUMAN IMMUNOGLOBULIN G
     Route: 058
  21. CEFTRIAXONE. [Concomitant]
     Active Substance: CEFTRIAXONE
  22. DULERA [Concomitant]
     Active Substance: FORMOTEROL FUMARATE DIHYDRATE\MOMETASONE FUROATE
  23. TIZANIDINE. [Concomitant]
     Active Substance: TIZANIDINE
  24. VYTORIN [Concomitant]
     Active Substance: EZETIMIBE\SIMVASTATIN

REACTIONS (1)
  - Bronchitis [Unknown]
